FAERS Safety Report 9344998 (Version 1)
Quarter: 2013Q2

REPORT INFORMATION
  Report Type: Spontaneous
  Country: FR (occurrence: FR)
  Receive Date: 20130612
  Receipt Date: 20130612
  Transmission Date: 20140414
  Serious: Yes (Hospitalization)
  Sender: FDA-Public Use
  Company Number: FR-US-EMD SERONO, INC.-7214963

PATIENT
  Age: 48 Year
  Sex: Female

DRUGS (6)
  1. REBIF [Suspect]
     Indication: MULTIPLE SCLEROSIS
     Route: 058
     Dates: end: 201303
  2. REBIF [Suspect]
     Route: 058
     Dates: start: 201303, end: 20130530
  3. REBIF [Suspect]
     Route: 058
     Dates: start: 20130530
  4. LAROXYL [Concomitant]
     Indication: MIGRAINE
     Dosage: 1 TO 2 DOSAGE FORMS
     Route: 048
  5. LAROXYL [Concomitant]
  6. INEXIUM                            /01479302/ [Concomitant]
     Indication: PROPHYLAXIS AGAINST GASTROINTESTINAL ULCER

REACTIONS (4)
  - Multiple sclerosis relapse [Not Recovered/Not Resolved]
  - Migraine [Not Recovered/Not Resolved]
  - Injection site erythema [Not Recovered/Not Resolved]
  - Injection site pain [Not Recovered/Not Resolved]
